FAERS Safety Report 6114768-X (Version None)
Quarter: 2009Q1

REPORT INFORMATION
  Report Type: 
  Country: None (occurrence: None)
  Receive Date: 20090313
  Receipt Date: 20090305
  Transmission Date: 20090719
  Serious: Yes (Other)
  Sender: FDA-Public Use
  Company Number: CA-ABBOTT-08P-028-0476801-00

PATIENT
  Sex: Female
  Weight: 62.198 kg

DRUGS (3)
  1. HUMIRA [Suspect]
     Indication: PSORIATIC ARTHROPATHY
     Route: 058
     Dates: start: 20080331, end: 20080708
  2. METHOTREXATE [Concomitant]
     Indication: PSORIATIC ARTHROPATHY
     Dosage: 10 MG WEEKLY
     Route: 048
     Dates: start: 20070801, end: 20080701
  3. PLAQUENIL [Concomitant]
     Indication: PSORIATIC ARTHROPATHY
     Dosage: 200 MG DAILY
     Route: 048
     Dates: start: 20071001, end: 20080701

REACTIONS (2)
  - MALIGNANT MELANOMA IN SITU [None]
  - SKIN LESION [None]
